FAERS Safety Report 4798159-X (Version None)
Quarter: 2005Q4

REPORT INFORMATION
  Report Type: 
  Country: None (occurrence: None)
  Receive Date: 20051011
  Receipt Date: 20051011
  Transmission Date: 20060501
  Serious: Yes (Hospitalization)
  Sender: FDA-Public Use
  Company Number: None

PATIENT
  Age: 60 Year
  Sex: Male
  Weight: 67.7 kg

DRUGS (1)
  1. PIPERACILLIN/TAZOBACTAM [Suspect]
     Indication: ABDOMINAL INFECTION
     Dosage: 13.5G, 3.375Q6H, INTRAVEN
     Route: 042
     Dates: start: 20050706, end: 20050718

REACTIONS (1)
  - RASH [None]
